FAERS Safety Report 5268109-0 (Version None)
Quarter: 2007Q1

REPORT INFORMATION
  Report Type: 
  Country: None (occurrence: None)
  Receive Date: 20070319
  Receipt Date: 20070306
  Transmission Date: 20070707
  Serious: Yes (Hospitalization, Other)
  Sender: FDA-Public Use
  Company Number: PHBS2007SE03957

PATIENT
  Age: 71 Year
  Sex: Female

DRUGS (6)
  1. ESIDRIX [Suspect]
     Indication: HYPERTONIA
     Dosage: 25MG
     Route: 048
     Dates: end: 20061018
  2. XALATAN [Concomitant]
     Dosage: 50 UG/ML
     Route: 065
  3. ENALAPRIL MALEATE [Concomitant]
     Dosage: 10MG DAILY
     Route: 048
  4. SIMVASTATIN [Concomitant]
     Dosage: 40MG
     Route: 065
  5. LEVAXIN [Concomitant]
     Dosage: 100UG
     Route: 048
  6. WARAN [Concomitant]
     Dosage: 2.5MG
     Route: 065

REACTIONS (9)
  - APHASIA [None]
  - CEREBRAL INFARCTION [None]
  - DIZZINESS [None]
  - DYSARTHRIA [None]
  - HYPERLIPIDAEMIA [None]
  - HYPERTENSION [None]
  - HYPONATRAEMIA [None]
  - LISTLESS [None]
  - TRANSIENT ISCHAEMIC ATTACK [None]
